FAERS Safety Report 23721937 (Version 2)
Quarter: 2024Q2

REPORT INFORMATION
  Report Type: Spontaneous
  Country: FR (occurrence: None)
  Receive Date: 20240409
  Receipt Date: 20240416
  Transmission Date: 20240715
  Serious: Yes (Hospitalization)
  Sender: FDA-Public Use
  Company Number: None

PATIENT
  Age: 65 Year
  Sex: Female

DRUGS (1)
  1. OBINUTUZUMAB [Suspect]
     Active Substance: OBINUTUZUMAB
     Indication: Lymphoma
     Route: 042
     Dates: start: 202301, end: 20231123

REACTIONS (3)
  - Myocarditis [Recovered/Resolved with Sequelae]
  - Immunodeficiency [Recovered/Resolved with Sequelae]
  - Meningitis enteroviral [Recovered/Resolved with Sequelae]

NARRATIVE: CASE EVENT DATE: 20240101
